FAERS Safety Report 13741246 (Version 1)
Quarter: 2017Q3

REPORT INFORMATION
  Report Type: Spontaneous
  Country: US (occurrence: US)
  Receive Date: 20170711
  Receipt Date: 20170711
  Transmission Date: 20171127
  Serious: Yes (Hospitalization)
  Sender: FDA-Public Use
  Company Number: None

PATIENT
  Age: 50 Year
  Sex: Female
  Weight: 69.3 kg

DRUGS (4)
  1. PIG PANCREAS [Concomitant]
  2. HORIZANT [Suspect]
     Active Substance: GABAPENTIN ENACARBIL
     Indication: COMPLEX REGIONAL PAIN SYNDROME
  3. PIG THYROID [Concomitant]
  4. VITAMINS [Concomitant]
     Active Substance: VITAMINS

REACTIONS (7)
  - Surgery [None]
  - Therapy change [None]
  - Vision blurred [None]
  - Dystonia [None]
  - Post procedural complication [None]
  - Chorea [None]
  - Extraocular muscle disorder [None]

NARRATIVE: CASE EVENT DATE: 20161023
